FAERS Safety Report 23323416 (Version 1)
Quarter: 2023Q4

REPORT INFORMATION
  Report Type: Spontaneous
  Country: FI (occurrence: FI)
  Receive Date: 20231220
  Receipt Date: 20231220
  Transmission Date: 20240109
  Serious: Yes (Disabling)
  Sender: FDA-Public Use
  Company Number: None

PATIENT
  Age: 37 Year

DRUGS (2)
  1. DOXYCYCLINE [Suspect]
     Active Substance: DOXYCYCLINE
     Indication: Urethritis
     Route: 048
     Dates: start: 20230516, end: 20230523
  2. PIMAFUCORT [Concomitant]
     Indication: Penile erythema
     Route: 061
     Dates: start: 20230516

REACTIONS (9)
  - Penile dermatitis [Recovering/Resolving]
  - Erythema [Recovering/Resolving]
  - Balanoposthitis [Recovering/Resolving]
  - Penile pain [Recovering/Resolving]
  - Condition aggravated [Recovering/Resolving]
  - Penile blister [Recovering/Resolving]
  - Fixed eruption [Recovering/Resolving]
  - Genital hyperaesthesia [Recovering/Resolving]
  - Penile exfoliation [Recovering/Resolving]

NARRATIVE: CASE EVENT DATE: 20230517
